FAERS Safety Report 9390914 (Version 1)
Quarter: 2013Q3

REPORT INFORMATION
  Report Type: Spontaneous
  Country: DE (occurrence: None)
  Receive Date: 20130705
  Receipt Date: 20130705
  Transmission Date: 20140515
  Serious: Yes (Hospitalization, Other)
  Sender: FDA-Public Use
  Company Number: DE-023347

PATIENT
  Age: 70 Year
  Sex: Male

DRUGS (6)
  1. CHLORAMBUCIL [Suspect]
     Indication: CHRONIC LYMPHOCYTIC LEUKAEMIA
     Dosage: DAY 1 AND DAY 15 EVERY 21 DAYS (42 MILLIGRAM), ORAL
     Route: 048
     Dates: start: 20100812, end: 20100927
  2. RITUXIMAB [Suspect]
     Indication: CHRONIC LYMPHOCYTIC LEUKAEMIA
     Dosage: EVERY 28 DAYS (147 MILLIGRAM, 1 IN 1MONTHS), INTRAVENOUS (NOT OTHERWISE SPECIFIED)
     Route: 042
     Dates: start: 20100812, end: 20100927
  3. ALLOPPURINOL [Concomitant]
  4. SULGAMETHOXAZOLE (SULFAMETHOXAZOLE AND TRIMETHOPRIM) [Concomitant]
  5. METOCOLOPRAMIDE [Concomitant]
  6. EPOETIN ALFA [Concomitant]

REACTIONS (5)
  - Herpes simplex [None]
  - Neutropenia [None]
  - Stomatitis [None]
  - Dysphagia [None]
  - Fungal infection [None]
